FAERS Safety Report 5857101-0 (Version None)
Quarter: 2008Q3

REPORT INFORMATION
  Report Type: 
  Country: None (occurrence: None)
  Receive Date: 20080825
  Receipt Date: 20070717
  Transmission Date: 20090109
  Serious: No
  Sender: FDA-Public Use
  Company Number: A0664570A

PATIENT
  Age: 33 Year
  Sex: Female

DRUGS (1)
  1. BEXXAR [Suspect]
     Route: 061

REACTIONS (1)
  - ACCIDENTAL EXPOSURE [None]
